FAERS Safety Report 6254572-5 (Version None)
Quarter: 2009Q3

REPORT INFORMATION
  Report Type: 
  Country: None (occurrence: None)
  Receive Date: 20090702
  Receipt Date: 20090623
  Transmission Date: 20100115
  Serious: Yes (Hospitalization)
  Sender: FDA-Public Use
  Company Number: A0781102A

PATIENT
  Age: 59 Year
  Sex: Female
  Weight: 118.6 kg

DRUGS (2)
  1. AVANDIA [Suspect]
     Dosage: 2MG TWICE PER DAY
     Route: 048
     Dates: start: 20060324, end: 20070314
  2. AVANDAMET [Suspect]
     Route: 048
     Dates: start: 20041203, end: 20060324

REACTIONS (2)
  - CARDIAC FAILURE CONGESTIVE [None]
  - COR PULMONALE [None]
